FAERS Safety Report 17023102 (Version 4)
Quarter: 2019Q4

REPORT INFORMATION
  Report Type: Spontaneous
  Country: US (occurrence: US)
  Receive Date: 20191112
  Receipt Date: 20191218
  Transmission Date: 20200122
  Serious: No
  Sender: FDA-Public Use
  Company Number: US-BAUSCH-BL-2019-054508

PATIENT
  Age: 43 Year
  Sex: Female

DRUGS (2)
  1. RETIN-A MICRO [Suspect]
     Active Substance: TRETINOIN
     Indication: ACNE
     Dosage: STARTED: EARLY AUG/2019
     Route: 061
     Dates: start: 201908
  2. ACZONE [Concomitant]
     Active Substance: DAPSONE
     Indication: PRODUCT USED FOR UNKNOWN INDICATION

REACTIONS (7)
  - Product quality issue [Unknown]
  - Skin exfoliation [Not Recovered/Not Resolved]
  - Product physical consistency issue [Unknown]
  - Scratch [Not Recovered/Not Resolved]
  - Acne cystic [Not Recovered/Not Resolved]
  - Product container issue [Unknown]
  - Product residue present [Unknown]

NARRATIVE: CASE EVENT DATE: 2019
